FAERS Safety Report 4613610-3 (Version None)
Quarter: 2005Q1

REPORT INFORMATION
  Report Type: 
  Country: None (occurrence: None)
  Receive Date: 20050321
  Receipt Date: 20050310
  Transmission Date: 20050727
  Serious: Yes (Hospitalization)
  Sender: FDA-Public Use
  Company Number: NL-BRISTOL-MYERS SQUIBB COMPANY-12893400

PATIENT
  Age: 26 Year
  Sex: Male

DRUGS (7)
  1. TAXOL [Suspect]
     Indication: GERM CELL CANCER
     Route: 042
     Dates: start: 20050211, end: 20050211
  2. ETOPOSIDE [Suspect]
     Indication: GERM CELL CANCER
     Route: 042
     Dates: start: 20050211, end: 20050215
  3. CISPLATIN [Suspect]
     Indication: GERM CELL CANCER
     Route: 042
     Dates: start: 20050211, end: 20050215
  4. BLEOMYCIN SULFATE [Suspect]
     Indication: GERM CELL CANCER
     Route: 042
     Dates: start: 20050212, end: 20050218
  5. PARACETAMOL [Concomitant]
  6. LOPERAMIDE HCL [Concomitant]
  7. PRIMPERAN TAB [Concomitant]

REACTIONS (4)
  - DIARRHOEA [None]
  - FEBRILE NEUTROPENIA [None]
  - NAUSEA [None]
  - VOMITING [None]
